FAERS Safety Report 11456491 (Version 1)
Quarter: 2015Q3

REPORT INFORMATION
  Report Type: Spontaneous
  Country: US (occurrence: US)
  Receive Date: 20150903
  Receipt Date: 20150903
  Transmission Date: 20151125
  Serious: Yes (Other)
  Sender: FDA-Public Use
  Company Number: US-TAKEDA-2014TUS002080

PATIENT

DRUGS (12)
  1. ACTOS [Suspect]
     Active Substance: PIOGLITAZONE HYDROCHLORIDE
     Indication: TYPE 2 DIABETES MELLITUS
     Dosage: 15 MG - 45 MG UNK
     Route: 048
     Dates: start: 200001, end: 200501
  2. AVANDAMET [Concomitant]
     Active Substance: METFORMIN HYDROCHLORIDE\ROSIGLITAZONE MALEATE
     Indication: DIABETES MELLITUS
     Dosage: 8/2000 MG, UNK
     Dates: start: 200409, end: 200712
  3. BYETTA [Concomitant]
     Active Substance: EXENATIDE
     Dosage: 5 ?G, UNK
     Dates: start: 200608, end: 200804
  4. BYDUREON [Concomitant]
     Active Substance: EXENATIDE
     Indication: DIABETES MELLITUS
     Dosage: 2 MG, UNK
     Dates: start: 2013
  5. ACTOS [Suspect]
     Active Substance: PIOGLITAZONE HYDROCHLORIDE
     Dosage: 15 MG - 45 MGUNK
     Route: 048
     Dates: start: 200804, end: 201205
  6. AMARYL [Concomitant]
     Active Substance: GLIMEPIRIDE
     Dosage: 6 MG, UNK
     Dates: start: 200105, end: 201202
  7. JANUMET [Concomitant]
     Active Substance: METFORMIN HYDROCHLORIDE\SITAGLIPTIN PHOSPHATE
     Indication: DIABETES MELLITUS
     Dosage: 100/2000 MG, UNK
     Dates: start: 200808, end: 201205
  8. AVANDIA [Concomitant]
     Active Substance: ROSIGLITAZONE MALEATE
     Dosage: 4 MG, UNK
     Dates: start: 200504, end: 200607
  9. METFORMIN [Concomitant]
     Active Substance: METFORMIN HYDROCHLORIDE
     Dosage: 1000 MG, UNK
     Dates: start: 200312, end: 201012
  10. GLUCOPHAGE [Concomitant]
     Active Substance: METFORMIN HYDROCHLORIDE
     Dosage: 8 MG, UNK
     Dates: start: 2003
  11. GLUCOTROL [Concomitant]
     Active Substance: GLIPIZIDE
     Dosage: 40 MG, UNK
     Dates: start: 200602
  12. JANUVIA [Concomitant]
     Active Substance: SITAGLIPTIN PHOSPHATE
     Dosage: 100 MG, UNK
     Dates: start: 2010

REACTIONS (1)
  - Bladder cancer [Unknown]

NARRATIVE: CASE EVENT DATE: 20010917
